FAERS Safety Report 25180636 (Version 2)
Quarter: 2025Q2

REPORT INFORMATION
  Report Type: Spontaneous
  Country: US (occurrence: US)
  Receive Date: 20250409
  Receipt Date: 20250425
  Transmission Date: 20250716
  Serious: No
  Sender: IDORSIA PHARMACEUTICALS
  Company Number: US-IDORSIA-009885-2025-US

PATIENT
  Age: 72 Year
  Sex: Male

DRUGS (2)
  1. QUVIVIQ [Suspect]
     Active Substance: DARIDOREXANT
     Indication: Insomnia
     Dosage: 50 MG, QD
     Route: 048
  2. VALIUM [Concomitant]
     Active Substance: DIAZEPAM

REACTIONS (4)
  - Concomitant disease aggravated [Recovering/Resolving]
  - Restless legs syndrome [Recovering/Resolving]
  - Drug ineffective [Not Recovered/Not Resolved]
  - Constipation [Recovered/Resolved]

NARRATIVE: CASE EVENT DATE: 20250331
